FAERS Safety Report 8796035 (Version 4)
Quarter: 2013Q2

REPORT INFORMATION
  Report Type: Report from Study
  Country: US (occurrence: US)
  Receive Date: 20120919
  Receipt Date: 20130521
  Transmission Date: 20140414
  Serious: Yes (Life-Threatening, Hospitalization)
  Sender: FDA-Public Use
  Company Number: US-JNJFOC-20120906816

PATIENT
  Age: 17 Year
  Sex: Female
  Weight: 57.4 kg

DRUGS (17)
  1. REMICADE [Suspect]
     Indication: INFLAMMATORY BOWEL DISEASE
     Route: 042
  2. REMICADE [Suspect]
     Indication: INFLAMMATORY BOWEL DISEASE
     Route: 042
     Dates: start: 20120905, end: 20120905
  3. EPINEPHRINE [Suspect]
     Indication: PRODUCT USED FOR UNKNOWN INDICATION
     Route: 065
  4. HYDROCORTISONE [Concomitant]
  5. ANTIBIOTICS [Concomitant]
     Indication: INFLAMMATORY BOWEL DISEASE
  6. DICYCLOMINE [Concomitant]
  7. DIPHENHYDRAMINE [Concomitant]
     Indication: PREMEDICATION
  8. DOCUSATE [Concomitant]
  9. ESOMEPRAZOLE [Concomitant]
  10. HYDROMORPHONE [Concomitant]
  11. LORAZEPAM [Concomitant]
  12. ONDANSETRON [Concomitant]
  13. TRAMADOL [Concomitant]
  14. AMPICILLIN [Concomitant]
  15. GENTAMICIN [Concomitant]
  16. ACETAMINOPHEN [Concomitant]
     Indication: PREMEDICATION
  17. PIPERACILLIN/TAZOBACTAM [Concomitant]
     Route: 065

REACTIONS (3)
  - Anaphylactic reaction [Recovered/Resolved]
  - Anal fistula [Recovered/Resolved]
  - Myocardial stunning [Recovered/Resolved]
